FAERS Safety Report 21457067 (Version 1)
Quarter: 2022Q4

REPORT INFORMATION
  Report Type: Report from Study
  Country: BR (occurrence: BR)
  Receive Date: 20221014
  Receipt Date: 20221014
  Transmission Date: 20230112
  Serious: Yes (Disabling, Other)
  Sender: FDA-Public Use
  Company Number: BR-UCBSA-2022059730

PATIENT
  Sex: Female
  Weight: 76 kg

DRUGS (1)
  1. CERTOLIZUMAB PEGOL [Suspect]
     Active Substance: CERTOLIZUMAB PEGOL
     Indication: Product used for unknown indication
     Route: 058

REACTIONS (5)
  - Disability [Not Recovered/Not Resolved]
  - Walking disability [Not Recovered/Not Resolved]
  - Hand deformity [Not Recovered/Not Resolved]
  - Injection site pain [Not Recovered/Not Resolved]
  - Peripheral swelling [Not Recovered/Not Resolved]
